FAERS Safety Report 16876604 (Version 1)
Quarter: 2019Q4

REPORT INFORMATION
  Report Type: Spontaneous
  Country: US (occurrence: US)
  Receive Date: 20191002
  Receipt Date: 20191002
  Transmission Date: 20200122
  Serious: Yes (Other)
  Sender: FDA-Public Use
  Company Number: US-ROCHE-2368574

PATIENT
  Sex: Female
  Weight: 55.3 kg

DRUGS (10)
  1. XOLAIR [Suspect]
     Active Substance: OMALIZUMAB
     Indication: URTICARIA
     Dosage: NO
     Route: 058
     Dates: start: 20181113, end: 20190118
  2. CLINDAMYCIN. [Concomitant]
     Active Substance: CLINDAMYCIN
  3. VITAMIN C [Concomitant]
     Active Substance: ASCORBIC ACID
  4. PLAQUENIL [Concomitant]
     Active Substance: HYDROXYCHLOROQUINE SULFATE
  5. BENADRYL [Concomitant]
     Active Substance: DIPHENHYDRAMINE HYDROCHLORIDE
  6. IRON [Concomitant]
     Active Substance: IRON
  7. EPINEPHRINE. [Concomitant]
     Active Substance: EPINEPHRINE
     Dosage: ONCE ;ONGOING: NO
     Route: 042
     Dates: start: 20190117
  8. EPINEPHRINE. [Concomitant]
     Active Substance: EPINEPHRINE
     Dosage: ONCE ;ONGOING: NO
     Route: 042
     Dates: start: 20190117
  9. ADAPALENE. [Concomitant]
     Active Substance: ADAPALENE
  10. COENZYME Q10 [Concomitant]
     Active Substance: UBIDECARENONE

REACTIONS (1)
  - Anaphylactic reaction [Recovered/Resolved]
